FAERS Safety Report 22750229 (Version 11)
Quarter: 2024Q3

REPORT INFORMATION
  Report Type: Spontaneous
  Country: CA (occurrence: CA)
  Receive Date: 20230726
  Receipt Date: 20240706
  Transmission Date: 20241017
  Serious: Yes (Other)
  Sender: CELLTRION
  Company Number: CA-CELLTRION INC.-2023CA011961

PATIENT

DRUGS (17)
  1. INFLECTRA [Suspect]
     Active Substance: INFLIXIMAB-DYYB
     Indication: Crohn^s disease
     Dosage: 10 MG/KG INDUCTION W 0, 2, THEN Q 8 WEEKS - HOSPITAL START
     Route: 042
     Dates: start: 20230601
  2. INFLECTRA [Suspect]
     Active Substance: INFLIXIMAB-DYYB
     Dosage: 10 MG/KG INDUCTION W 0, 2, THEN Q 8 WEEKS - RECEIVED IN HOSPITAL
     Route: 042
     Dates: start: 20230610
  3. INFLECTRA [Suspect]
     Active Substance: INFLIXIMAB-DYYB
     Dosage: 740 MG, AFTER 6 WEEKS
     Route: 042
     Dates: start: 20230710, end: 20230710
  4. INFLECTRA [Suspect]
     Active Substance: INFLIXIMAB-DYYB
     Dosage: 760 MG, AFTER 8 WEEKS
     Route: 042
     Dates: start: 20230905
  5. INFLECTRA [Suspect]
     Active Substance: INFLIXIMAB-DYYB
     Dosage: 760 MG, AFTER 8 WEEKS
     Route: 042
     Dates: start: 20230905
  6. INFLECTRA [Suspect]
     Active Substance: INFLIXIMAB-DYYB
     Dosage: 760 MG, AFTER 8 WEEKS
     Route: 042
     Dates: start: 20230905
  7. INFLECTRA [Suspect]
     Active Substance: INFLIXIMAB-DYYB
     Dosage: 800MG (10 MG/KG), AFTER 8 WEEKS
     Route: 042
     Dates: start: 20231031
  8. INFLECTRA [Suspect]
     Active Substance: INFLIXIMAB-DYYB
     Dosage: 800MG (10 MG/KG), AFTER 8 WEEKS
     Route: 042
     Dates: start: 20231031
  9. INFLECTRA [Suspect]
     Active Substance: INFLIXIMAB-DYYB
     Dosage: 800MG (10 MG/KG), EVERY 4 WEEKS
     Route: 042
     Dates: start: 20231127
  10. INFLECTRA [Suspect]
     Active Substance: INFLIXIMAB-DYYB
     Dosage: 800MG (10 MG/KG), EVERY 4 WEEKS
     Route: 042
     Dates: start: 20231127
  11. INFLECTRA [Suspect]
     Active Substance: INFLIXIMAB-DYYB
     Dosage: 800MG (10 MG/KG), EVERY 4 WEEKS
     Route: 042
     Dates: start: 20231228, end: 20231228
  12. INFLECTRA [Suspect]
     Active Substance: INFLIXIMAB-DYYB
     Dosage: 10 MG/KG, EVERY 4 WEEKS
     Route: 042
     Dates: start: 20240126
  13. INFLECTRA [Suspect]
     Active Substance: INFLIXIMAB-DYYB
     Dosage: 770 MG,(10MG/KG) AFTER 4 WEEKS
     Route: 042
     Dates: start: 20240223, end: 20240223
  14. INFLECTRA [Suspect]
     Active Substance: INFLIXIMAB-DYYB
     Dosage: 10 MG/KG (780MG), AFTER 5 WEEKS AND 5 DAYS (PRESCRIBED EVERY 6 WEEKS)
     Route: 042
     Dates: start: 20240403
  15. INFLECTRA [Suspect]
     Active Substance: INFLIXIMAB-DYYB
     Dosage: 10 MG/KG, EVERY 6 WEEKS
     Route: 042
     Dates: start: 20240517
  16. INFLECTRA [Suspect]
     Active Substance: INFLIXIMAB-DYYB
     Dosage: 10 MG/KG (750 MG), EVERY 6 WEEKS
     Route: 042
     Dates: start: 20240628
  17. PREDNISONE [Concomitant]
     Active Substance: PREDNISONE
     Dosage: 1 DF
     Dates: start: 202306

REACTIONS (7)
  - Arthralgia [Recovered/Resolved]
  - Blood pressure increased [Recovered/Resolved]
  - Blood pressure systolic increased [Not Recovered/Not Resolved]
  - Drug level decreased [Unknown]
  - Heart rate decreased [Not Recovered/Not Resolved]
  - Off label use [Unknown]
  - Off label use [Unknown]

NARRATIVE: CASE EVENT DATE: 20230101
